FAERS Safety Report 5317222-8 (Version None)
Quarter: 2007Q2

REPORT INFORMATION
  Report Type: 
  Country: None (occurrence: None)
  Receive Date: 20070504
  Receipt Date: 20070424
  Transmission Date: 20071010
  Serious: Yes (Life-Threatening, Hospitalization)
  Sender: FDA-Public Use
  Company Number: ES-PFIZER INC-2007032651

PATIENT
  Age: 45 Year
  Sex: Female

DRUGS (4)
  1. AMLODIPINE [Suspect]
     Indication: ESSENTIAL HYPERTENSION
     Route: 048
  2. HYDROCHLOROTHIAZIDE [Interacting]
     Indication: ESSENTIAL HYPERTENSION
     Route: 048
     Dates: start: 20070111, end: 20070115
  3. VALSARTAN [Interacting]
     Indication: ESSENTIAL HYPERTENSION
     Route: 048
     Dates: start: 20070111, end: 20070115
  4. DOXAZOSIN MESYLATE [Concomitant]
     Route: 048
     Dates: start: 20060420, end: 20070111

REACTIONS (3)
  - BLOOD CREATINE PHOSPHOKINASE INCREASED [None]
  - DRUG INTERACTION [None]
  - HYPOKALAEMIA [None]
